FAERS Safety Report 5752545-X (Version None)
Quarter: 2008Q2

REPORT INFORMATION
  Report Type: 
  Country: None (occurrence: None)
  Receive Date: 20080529
  Receipt Date: 20080519
  Transmission Date: 20081010
  Serious: Yes (Hospitalization, Other)
  Sender: FDA-Public Use
  Company Number: AT-ABBOTT-08P-009-0452694-00

PATIENT
  Sex: Female

DRUGS (3)
  1. HUMIRA [Suspect]
     Indication: CROHN'S DISEASE
     Route: 058
  2. HUMIRA [Suspect]
  3. CERTOLIZUMAB (CERTOLIZUMAB) [Interacting]
     Indication: CROHN'S DISEASE

REACTIONS (3)
  - ABASIA [None]
  - DRUG INTERACTION [None]
  - GRANULOMA [None]
